FAERS Safety Report 7879650-6 (Version None)
Quarter: 2011Q4

REPORT INFORMATION
  Report Type: 
  Country: None (occurrence: None)
  Receive Date: 20111101
  Receipt Date: 20111018
  Transmission Date: 20120403
  Serious: Yes (Other)
  Sender: FDA-Public Use
  Company Number: JP-GLAXOSMITHKLINE-B0674193A

PATIENT
  Sex: Female
  Weight: 40 kg

DRUGS (8)
  1. TYKERB [Suspect]
     Indication: BREAST CANCER
     Dosage: 1250MG PER DAY
     Route: 048
     Dates: start: 20100417, end: 20100712
  2. XELODA [Suspect]
     Indication: PRODUCT USED FOR UNKNOWN INDICATION
     Dosage: 1800MG PER DAY
     Route: 048
     Dates: start: 20100417, end: 20100712
  3. RABEPRAZOLE SODIUM [Concomitant]
     Indication: GASTRITIS
     Dosage: 10MG PER DAY
     Route: 048
     Dates: start: 20080215
  4. RIZE [Concomitant]
     Indication: ANXIETY
     Dosage: 10MG PER DAY
     Route: 048
     Dates: start: 20070107
  5. METHYCOBAL [Concomitant]
     Dosage: 1500MG PER DAY
     Route: 048
  6. ETODOLAC [Concomitant]
     Dosage: 400MG PER DAY
     Route: 048
  7. GASTROM [Concomitant]
     Indication: GASTRITIS
     Dosage: 3G PER DAY
     Route: 048
     Dates: start: 20061208
  8. LIPITOR [Concomitant]
     Indication: HYPERLIPIDAEMIA
     Dosage: 10MG PER DAY
     Route: 048

REACTIONS (1)
  - PALMAR-PLANTAR ERYTHRODYSAESTHESIA SYNDROME [None]
